FAERS Safety Report 16034583 (Version 1)
Quarter: 2019Q1

REPORT INFORMATION
  Report Type: Spontaneous
  Country: US (occurrence: US)
  Receive Date: 20190205
  Receipt Date: 20190205
  Transmission Date: 20190418
  Serious: No
  Sender: FDA-Public Use
  Company Number: None

PATIENT
  Age: 56 Year
  Sex: Female

DRUGS (10)
  1. LIPITOR [Concomitant]
     Active Substance: ATORVASTATIN CALCIUM
  2. SINGULAIR [Concomitant]
     Active Substance: MONTELUKAST SODIUM
  3. VITAMIN C [Concomitant]
     Active Substance: ASCORBIC ACID
  4. COZAAR [Concomitant]
     Active Substance: LOSARTAN POTASSIUM
  5. ASPIRIN. [Concomitant]
     Active Substance: ASPIRIN
  6. METOPROLOL TARTRATE. [Concomitant]
     Active Substance: METOPROLOL TARTRATE
  7. VITAMIN B-6 [Concomitant]
     Active Substance: PYRIDOXINE
  8. VITAMIN D [Concomitant]
     Active Substance: CHOLECALCIFEROL
  9. ESBRIET [Suspect]
     Active Substance: PIRFENIDONE
     Indication: IDIOPATHIC PULMONARY FIBROSIS
     Route: 048
     Dates: start: 20180531
  10. METFORMIN [Concomitant]
     Active Substance: METFORMIN HYDROCHLORIDE

REACTIONS (1)
  - Influenza [None]

NARRATIVE: CASE EVENT DATE: 20190105
